FAERS Safety Report 6948586-7 (Version None)
Quarter: 2010Q3

REPORT INFORMATION
  Report Type: 
  Country: None (occurrence: None)
  Receive Date: 20100828
  Receipt Date: 20091116
  Transmission Date: 20110219
  Serious: No
  Sender: FDA-Public Use
  Company Number: US-ABBOTT-09P-163-0609399-00

PATIENT
  Weight: 61.29 kg

DRUGS (4)
  1. NIASPAN [Suspect]
     Indication: BLOOD CHOLESTEROL ABNORMAL
     Dates: start: 20091001, end: 20091101
  2. LISINOPRIL AND HYDROCHLOROTHIAZIDE [Concomitant]
     Indication: PRODUCT USED FOR UNKNOWN INDICATION
  3. LEVOTHYROXINE [Concomitant]
     Indication: PRODUCT USED FOR UNKNOWN INDICATION
  4. FISH OIL [Concomitant]
     Indication: PRODUCT USED FOR UNKNOWN INDICATION

REACTIONS (2)
  - ERYTHEMA [None]
  - HOT FLUSH [None]
